FAERS Safety Report 21026606 (Version 1)
Quarter: 2022Q2

REPORT INFORMATION
  Report Type: Spontaneous
  Country: US (occurrence: US)
  Receive Date: 20220630
  Receipt Date: 20220630
  Transmission Date: 20220721
  Serious: No
  Sender: FDA-Public Use
  Company Number: US-SANOFI-01162527

PATIENT
  Age: 41 Year

DRUGS (1)
  1. DUPIXENT [Suspect]
     Active Substance: DUPILUMAB
     Dosage: UNK
     Dates: start: 20220512, end: 20220512

REACTIONS (3)
  - Gingivitis [Unknown]
  - Oral pain [Unknown]
  - Toothache [Unknown]

NARRATIVE: CASE EVENT DATE: 20220512
